FAERS Safety Report 5067587-X (Version None)
Quarter: 2006Q3

REPORT INFORMATION
  Report Type: 
  Country: None (occurrence: None)
  Receive Date: 20060731
  Receipt Date: 20060713
  Transmission Date: 20061208
  Serious: Yes (Other)
  Sender: FDA-Public Use
  Company Number: US200607000703

PATIENT
  Sex: Male

DRUGS (4)
  1. ALIMTA [Suspect]
     Dosage: 500 MG/M2, INTRAVENOUS
     Route: 042
     Dates: start: 20050622, end: 20050929
  2. CISPLATIN [Concomitant]
  3. FOLIC ACID [Concomitant]
  4. CYANOCOBALAMIN [Concomitant]

REACTIONS (1)
  - RASH [None]
